FAERS Safety Report 7677685-X (Version None)
Quarter: 2011Q3

REPORT INFORMATION
  Report Type: 
  Country: None (occurrence: None)
  Receive Date: 20110811
  Receipt Date: 20110803
  Transmission Date: 20111222
  Serious: Yes (Hospitalization)
  Sender: FDA-Public Use
  Company Number: PHHY2011TN70467

PATIENT
  Sex: Female

DRUGS (2)
  1. GLEEVEC [Suspect]
     Route: 048
  2. GLEEVEC [Suspect]
     Indication: ACUTE LYMPHOCYTIC LEUKAEMIA
     Dosage: 200 MG/ DAY
     Route: 048
     Dates: start: 20110409

REACTIONS (1)
  - RESPIRATORY DISTRESS [None]
